FAERS Safety Report 25149809 (Version 1)
Quarter: 2025Q2

REPORT INFORMATION
  Report Type: Spontaneous
  Country: BG (occurrence: BG)
  Receive Date: 20250402
  Receipt Date: 20250402
  Transmission Date: 20250717
  Serious: Yes (Other)
  Sender: CELLTRION
  Company Number: BG-AMGEN-BGRSP2024191659

PATIENT

DRUGS (38)
  1. BEVACIZUMAB [Suspect]
     Active Substance: BEVACIZUMAB
     Indication: Hepatocellular carcinoma
  2. BEVACIZUMAB [Suspect]
     Active Substance: BEVACIZUMAB
  3. BEVACIZUMAB [Suspect]
     Active Substance: BEVACIZUMAB
  4. BEVACIZUMAB [Suspect]
     Active Substance: BEVACIZUMAB
  5. BEVACIZUMAB [Suspect]
     Active Substance: BEVACIZUMAB
  6. BEVACIZUMAB [Suspect]
     Active Substance: BEVACIZUMAB
  7. BEVACIZUMAB [Suspect]
     Active Substance: BEVACIZUMAB
  8. BEVACIZUMAB [Suspect]
     Active Substance: BEVACIZUMAB
  9. BEVACIZUMAB [Suspect]
     Active Substance: BEVACIZUMAB
  10. BEVACIZUMAB [Suspect]
     Active Substance: BEVACIZUMAB
  11. BEVACIZUMAB [Suspect]
     Active Substance: BEVACIZUMAB
  12. BEVACIZUMAB [Suspect]
     Active Substance: BEVACIZUMAB
  13. BEVACIZUMAB [Suspect]
     Active Substance: BEVACIZUMAB
  14. BEVACIZUMAB [Suspect]
     Active Substance: BEVACIZUMAB
  15. BEVACIZUMAB [Suspect]
     Active Substance: BEVACIZUMAB
  16. BEVACIZUMAB [Suspect]
     Active Substance: BEVACIZUMAB
  17. BEVACIZUMAB [Suspect]
     Active Substance: BEVACIZUMAB
  18. BEVACIZUMAB [Suspect]
     Active Substance: BEVACIZUMAB
  19. BEVACIZUMAB [Suspect]
     Active Substance: BEVACIZUMAB
     Route: 065
  20. ATEZOLIZUMAB [Concomitant]
     Active Substance: ATEZOLIZUMAB
     Indication: Hepatocellular carcinoma
  21. ATEZOLIZUMAB [Concomitant]
     Active Substance: ATEZOLIZUMAB
  22. ATEZOLIZUMAB [Concomitant]
     Active Substance: ATEZOLIZUMAB
  23. ATEZOLIZUMAB [Concomitant]
     Active Substance: ATEZOLIZUMAB
  24. ATEZOLIZUMAB [Concomitant]
     Active Substance: ATEZOLIZUMAB
  25. ATEZOLIZUMAB [Concomitant]
     Active Substance: ATEZOLIZUMAB
  26. ATEZOLIZUMAB [Concomitant]
     Active Substance: ATEZOLIZUMAB
  27. ATEZOLIZUMAB [Concomitant]
     Active Substance: ATEZOLIZUMAB
  28. ATEZOLIZUMAB [Concomitant]
     Active Substance: ATEZOLIZUMAB
  29. ATEZOLIZUMAB [Concomitant]
     Active Substance: ATEZOLIZUMAB
  30. ATEZOLIZUMAB [Concomitant]
     Active Substance: ATEZOLIZUMAB
  31. ATEZOLIZUMAB [Concomitant]
     Active Substance: ATEZOLIZUMAB
  32. ATEZOLIZUMAB [Concomitant]
     Active Substance: ATEZOLIZUMAB
  33. ATEZOLIZUMAB [Concomitant]
     Active Substance: ATEZOLIZUMAB
  34. ATEZOLIZUMAB [Concomitant]
     Active Substance: ATEZOLIZUMAB
  35. ATEZOLIZUMAB [Concomitant]
     Active Substance: ATEZOLIZUMAB
  36. ATEZOLIZUMAB [Concomitant]
     Active Substance: ATEZOLIZUMAB
  37. ATEZOLIZUMAB [Concomitant]
     Active Substance: ATEZOLIZUMAB
  38. ATEZOLIZUMAB [Concomitant]
     Active Substance: ATEZOLIZUMAB
     Route: 065

REACTIONS (5)
  - Hepatocellular carcinoma [Unknown]
  - Dizziness [Unknown]
  - Hypertension [Unknown]
  - Therapeutic response decreased [Unknown]
  - Off label use [Unknown]
